FAERS Safety Report 9243212 (Version 2)
Quarter: 2013Q2

REPORT INFORMATION
  Report Type: Spontaneous
  Country: US (occurrence: US)
  Receive Date: 20130419
  Receipt Date: 20130617
  Transmission Date: 20140414
  Serious: Yes (Disabling)
  Sender: FDA-Public Use
  Company Number: US-PERRIGO-13US004211

PATIENT
  Age: 30 Year
  Sex: Male

DRUGS (1)
  1. ACETAMINOPHEN-ASPIRIN-CAFFEINE 6X0 [Suspect]
     Indication: PRODUCT USED FOR UNKNOWN INDICATION
     Dosage: 2 TABLETS, PRN
     Route: 048
     Dates: start: 20130327

REACTIONS (1)
  - Drug screen positive [Unknown]
